FAERS Safety Report 14551707 (Version 1)
Quarter: 2018Q1

REPORT INFORMATION
  Report Type: Spontaneous
  Country: US (occurrence: US)
  Receive Date: 20180220
  Receipt Date: 20180220
  Transmission Date: 20180509
  Serious: No
  Sender: FDA-Public Use
  Company Number: US-ASTRAZENECA-2018SE14454

PATIENT
  Age: 27206 Day
  Sex: Male
  Weight: 81.6 kg

DRUGS (1)
  1. BYDUREON [Suspect]
     Active Substance: EXENATIDE
     Indication: TYPE 2 DIABETES MELLITUS
     Route: 058

REACTIONS (8)
  - Vascular injury [Recovering/Resolving]
  - Underdose [Unknown]
  - Medication error [Unknown]
  - Erythema [Unknown]
  - Contusion [Recovering/Resolving]
  - Injection site haemorrhage [Recovered/Resolved]
  - Anxiety [Unknown]
  - Needle issue [Unknown]

NARRATIVE: CASE EVENT DATE: 20180117
